FAERS Safety Report 11888571 (Version 1)
Quarter: 2016Q1

REPORT INFORMATION
  Report Type: Spontaneous
  Country: CH (occurrence: CH)
  Receive Date: 20160105
  Receipt Date: 20160105
  Transmission Date: 20160526
  Serious: Yes (Life-Threatening, Hospitalization)
  Sender: FDA-Public Use
  Company Number: CH-009507513-1512CHE013197

PATIENT
  Age: 72 Year
  Sex: Male
  Weight: 65 kg

DRUGS (4)
  1. DAPTOMYCIN. [Suspect]
     Active Substance: DAPTOMYCIN
     Indication: SEPTIC ARTHRITIS STAPHYLOCOCCAL
     Dosage: 300 MG, QD
     Route: 040
     Dates: start: 20150731, end: 20150810
  2. CIPRALEX [Concomitant]
     Active Substance: ESCITALOPRAM OXALATE
     Dosage: UNK
     Dates: start: 20150805
  3. LASIX [Concomitant]
     Active Substance: FUROSEMIDE
     Dosage: DOSE 20/2 MG/ML
     Dates: start: 20150803, end: 20150909
  4. ROCEPHIN [Concomitant]
     Active Substance: CEFTRIAXONE SODIUM
     Dosage: UNK
     Dates: start: 20150731, end: 20150802

REACTIONS (4)
  - Lung infiltration [Recovering/Resolving]
  - Pleural effusion [Recovered/Resolved]
  - Eosinophilic pneumonia acute [Recovered/Resolved with Sequelae]
  - Hypoxia [Recovering/Resolving]

NARRATIVE: CASE EVENT DATE: 20150801
